FAERS Safety Report 9755036 (Version 1)
Quarter: 2013Q4

REPORT INFORMATION
  Report Type: Spontaneous
  Country: IT (occurrence: IT)
  Receive Date: 20131213
  Receipt Date: 20131213
  Transmission Date: 20140711
  Serious: Yes (Other)
  Sender: FDA-Public Use
  Company Number: IT-PFIZER INC-2013345114

PATIENT
  Age: 55 Year
  Sex: Male

DRUGS (2)
  1. AMIODAR [Suspect]
     Indication: ATRIAL FIBRILLATION
     Dosage: 1 DF, DAILY
     Route: 048
     Dates: start: 20091030, end: 20131030
  2. KEPPRA [Concomitant]
     Dosage: UNK

REACTIONS (2)
  - Hepatitis [Recovered/Resolved]
  - Hyperparathyroidism [Recovered/Resolved]
